FAERS Safety Report 10240834 (Version 2)
Quarter: 2014Q3

REPORT INFORMATION
  Report Type: Report from Study
  Country: NL (occurrence: NL)
  Receive Date: 20140617
  Receipt Date: 20140703
  Transmission Date: 20150326
  Serious: Yes (Death)
  Sender: FDA-Public Use
  Company Number: NL-ROCHE-1419911

PATIENT
  Age: 68 Year
  Sex: Female

DRUGS (1)
  1. MIRCERA [Suspect]
     Active Substance: PEGZEREPOETIN ALFA
     Indication: NEPHROGENIC ANAEMIA
     Dosage: 50 INJECTION FLUID 167UG/ML WWS/0.3ML
     Route: 058
     Dates: start: 20130913

REACTIONS (3)
  - Coronary artery bypass [Fatal]
  - Haemothorax [Fatal]
  - Heart valve replacement [Fatal]

NARRATIVE: CASE EVENT DATE: 20140606
